FAERS Safety Report 5764755-6 (Version None)
Quarter: 2008Q2

REPORT INFORMATION
  Report Type: 
  Country: None (occurrence: None)
  Receive Date: 20080611
  Receipt Date: 20080603
  Transmission Date: 20081010
  Serious: Yes (Hospitalization)
  Sender: FDA-Public Use
  Company Number: DE-MERCK-0806DEU00014

PATIENT
  Age: 11 Month
  Sex: Male

DRUGS (4)
  1. SINGULAIR [Suspect]
     Indication: BRONCHITIS CHRONIC
     Route: 048
     Dates: start: 20080317, end: 20080414
  2. SINGULAIR [Suspect]
     Indication: COUGH
     Route: 048
     Dates: start: 20080317, end: 20080414
  3. [THERAPY UNSPECIFIED] [Concomitant]
     Route: 065
  4. ANTIMICROBIAL (UNSPECIFIED) [Concomitant]
     Route: 065

REACTIONS (3)
  - CONCUSSION [None]
  - RETINAL HAEMORRHAGE [None]
  - SUBDURAL HAEMORRHAGE [None]
